FAERS Safety Report 4622863-7 (Version None)
Quarter: 2005Q1

REPORT INFORMATION
  Report Type: 
  Country: None (occurrence: None)
  Receive Date: 20050330
  Receipt Date: 20050323
  Transmission Date: 20050727
  Serious: Yes (Life-Threatening)
  Sender: FDA-Public Use
  Company Number: JP-GLAXOSMITHKLINE-B0375985A

PATIENT
  Age: 57 Year
  Sex: Female

DRUGS (3)
  1. PAXIL [Suspect]
     Indication: PANIC DISORDER
     Dosage: 20MG PER DAY
     Route: 048
  2. LEXOTAN [Concomitant]
     Route: 048
  3. ROHYPNOL [Concomitant]
     Route: 048

REACTIONS (1)
  - SUICIDE ATTEMPT [None]
